FAERS Safety Report 7003536-2 (Version None)
Quarter: 2010Q3

REPORT INFORMATION
  Report Type: 
  Country: None (occurrence: None)
  Receive Date: 20100916
  Receipt Date: 20100901
  Transmission Date: 20110219
  Serious: Yes (Other)
  Sender: FDA-Public Use
  Company Number: DSA_43903_2010

PATIENT
  Age: 49 Year
  Sex: Male

DRUGS (8)
  1. ELONTRIL (ELONTRIL-BUPROPION HYDROCHLORIDE EXTENDED RELEASE) (NOT SPEC [Suspect]
     Indication: DEPRESSION
     Dosage: (150 MG QD ORAL)
     Route: 048
     Dates: start: 20100828
  2. LITHIUM [Concomitant]
  3. VENLAFAXINE HYDROCHLORIDE [Concomitant]
  4. SEDOTIME [Concomitant]
  5. IDALPREM [Concomitant]
  6. ROHIPNOL [Concomitant]
  7. SINOGAN /00038603/ [Concomitant]
  8. REXER [Concomitant]

REACTIONS (3)
  - ANXIETY [None]
  - IRRITABILITY [None]
  - PSORIASIS [None]
